FAERS Safety Report 10273211 (Version 1)
Quarter: 2014Q2

REPORT INFORMATION
  Report Type: Spontaneous
  Country: US (occurrence: None)
  Receive Date: 20140630
  Receipt Date: 20140630
  Transmission Date: 20141212
  Serious: Yes (Hospitalization)
  Sender: FDA-Public Use
  Company Number: None

PATIENT
  Age: 62 Year
  Sex: Male
  Weight: 80.9 kg

DRUGS (1)
  1. FLUOROURACIL [Suspect]
     Indication: ANAL SQUAMOUS CELL CARCINOMA
     Dates: start: 20131114

REACTIONS (1)
  - Hepatitis [None]
